FAERS Safety Report 9106393 (Version 1)
Quarter: 2013Q1

REPORT INFORMATION
  Report Type: Report from Study
  Country: US (occurrence: US)
  Receive Date: 20130221
  Receipt Date: 20130221
  Transmission Date: 20140127
  Serious: No
  Sender: FDA-Public Use
  Company Number: US-VERTEX PHARMACEUTICALS INC.-2013-002375

PATIENT
  Sex: Male
  Weight: 103 kg

DRUGS (13)
  1. VX-950 (TELAPREVIR) [Suspect]
     Indication: HEPATITIS C
     Dosage: 750 MG, TID
     Route: 048
     Dates: start: 2012
  2. RIBASPHERE [Suspect]
     Indication: HEPATITIS C
     Dosage: 600 MG, BID
     Dates: start: 2012
  3. PEGASYS [Suspect]
     Indication: HEPATITIS C
     Dosage: 180 ?G, QW
     Route: 058
     Dates: start: 2012
  4. ASPIRIN [Concomitant]
     Dosage: 81 MG, QD
  5. SELENIUM [Concomitant]
     Dosage: 200 ?G, QD
  6. VITAMIN C [Concomitant]
     Dosage: 1000 MG, QD
  7. SILYBUM MARIANUM [Concomitant]
     Dosage: 175 MG, QD
  8. ALPHA LIPOIC ACID [Concomitant]
     Dosage: 100 MG, QD
  9. FISH OIL [Concomitant]
  10. TIKOSYN [Concomitant]
     Dosage: UNK, QD
  11. SYNTHROID [Concomitant]
     Dosage: UNK, QD
  12. URSODIOL [Concomitant]
  13. COQ10 [Concomitant]

REACTIONS (4)
  - Irritability [Unknown]
  - Fatigue [Unknown]
  - Lethargy [Unknown]
  - Rash [Recovered/Resolved]
